FAERS Safety Report 6122241-8 (Version None)
Quarter: 2009Q1

REPORT INFORMATION
  Report Type: 
  Country: None (occurrence: None)
  Receive Date: 20090316
  Receipt Date: 20090306
  Transmission Date: 20090719
  Serious: Yes (Hospitalization)
  Sender: FDA-Public Use
  Company Number: 186215ISR

PATIENT
  Age: 85 Year
  Sex: Female

DRUGS (5)
  1. WARFARIN SODIUM [Suspect]
     Indication: CEREBROVASCULAR ACCIDENT PROPHYLAXIS
     Dosage: 3 MG (3 MG,1 IN 1 D) ORAL
     Route: 048
     Dates: start: 20060920, end: 20081114
  2. WARFARIN SODIUM [Suspect]
     Indication: EMBOLISM
     Dosage: 3 MG (3 MG,1 IN 1 D) ORAL
     Route: 048
     Dates: start: 20060920, end: 20081114
  3. AZITHROMYCIN [Suspect]
     Indication: BRONCHITIS
     Dosage: 1000 MG (500 MG,2 IN 1 D) ORAL
     Route: 048
     Dates: start: 20060928, end: 20081004
  4. CEFUROXIME [Suspect]
     Dosage: 1000 MG (500 MG,2 IN 1 D) ORAL
     Route: 048
     Dates: start: 20081106, end: 20081122
  5. ATORVASTATIN CALCIUM [Suspect]
     Indication: HYPERCHOLESTEROLAEMIA
     Dosage: 10 MG (10 MG,1 IN 1 D) ORAL
     Route: 048
     Dates: start: 20060908

REACTIONS (3)
  - CHOLANGITIS ACUTE [None]
  - HEPATOTOXICITY [None]
  - HYPOCOAGULABLE STATE [None]
